FAERS Safety Report 11745606 (Version 1)
Quarter: 2015Q4

REPORT INFORMATION
  Report Type: Spontaneous
  Country: US (occurrence: None)
  Receive Date: 20151116
  Receipt Date: 20151116
  Transmission Date: 20160304
  Serious: No
  Sender: FDA-Public Use
  Company Number: None

PATIENT
  Age: 59 Year
  Sex: Female

DRUGS (1)
  1. MIRVASO [Suspect]
     Active Substance: BRIMONIDINE TARTRATE
     Indication: ROSACEA
     Dosage: ONE APPLICATION APPLIED TO A SURFACE, USUALLY THE SKIN
     Dates: start: 20151110, end: 20151112

REACTIONS (5)
  - Pain [None]
  - Rosacea [None]
  - Erythema [None]
  - Flushing [None]
  - Burning sensation [None]

NARRATIVE: CASE EVENT DATE: 20151110
